FAERS Safety Report 5100191-3 (Version None)
Quarter: 2006Q3

REPORT INFORMATION
  Report Type: 
  Country: None (occurrence: None)
  Receive Date: 20060728
  Receipt Date: 20060509
  Transmission Date: 20061208
  Serious: Yes (Hospitalization)
  Sender: FDA-Public Use
  Company Number: 200610172

PATIENT
  Sex: Female

DRUGS (1)
  1. CARIMUNE [Suspect]
     Dosage: IV
     Route: 042
     Dates: start: 20060106

REACTIONS (1)
  - HYPERSENSITIVITY [None]
